FAERS Safety Report 23621259 (Version 1)
Quarter: 2024Q1

REPORT INFORMATION
  Report Type: Spontaneous
  Country: US (occurrence: US)
  Receive Date: 20240312
  Receipt Date: 20240312
  Transmission Date: 20240409
  Serious: No
  Sender: FDA-Public Use
  Company Number: US-BIOGEN-2019BI00752863

PATIENT
  Age: 58 Year
  Sex: Female

DRUGS (3)
  1. TECFIDERA [Suspect]
     Active Substance: DIMETHYL FUMARATE
     Indication: Multiple sclerosis
     Dosage: X 7 DAYS
     Route: 050
     Dates: start: 20190603, end: 20190609
  2. TECFIDERA [Suspect]
     Active Substance: DIMETHYL FUMARATE
     Dosage: X 23 DAYS AFTER 120 MG DOSE
     Route: 050
     Dates: start: 20190610
  3. TECFIDERA [Suspect]
     Active Substance: DIMETHYL FUMARATE
     Route: 050
     Dates: start: 201906, end: 20210219

REACTIONS (11)
  - Fatigue [Unknown]
  - Taste disorder [Unknown]
  - Allergic sinusitis [Unknown]
  - Headache [Unknown]
  - Mood swings [Unknown]
  - Muscular weakness [Recovered/Resolved]
  - Gastrointestinal disorder [Recovered/Resolved]
  - Hyperhidrosis [Recovered/Resolved]
  - Multiple allergies [Unknown]
  - Pruritus [Not Recovered/Not Resolved]
  - Hot flush [Recovered/Resolved]

NARRATIVE: CASE EVENT DATE: 20190601
